FAERS Safety Report 9219919 (Version 3)
Quarter: 2013Q2

REPORT INFORMATION
  Report Type: Spontaneous
  Country: US (occurrence: US)
  Receive Date: 20130409
  Receipt Date: 20130513
  Transmission Date: 20140414
  Serious: Yes (Hospitalization)
  Sender: FDA-Public Use
  Company Number: US-GILEAD-2013-0072971

PATIENT
  Sex: Female

DRUGS (1)
  1. LETAIRIS [Suspect]
     Indication: PRODUCT USED FOR UNKNOWN INDICATION
     Dosage: 10 MG, UNK
     Dates: start: 20130115

REACTIONS (7)
  - Device related infection [Unknown]
  - Lethargy [Unknown]
  - Disorientation [Unknown]
  - Depressed level of consciousness [Unknown]
  - Blood potassium decreased [Unknown]
  - Hepatic enzyme increased [Unknown]
  - Pyrexia [Unknown]
